FAERS Safety Report 16008648 (Version 4)
Quarter: 2019Q2

REPORT INFORMATION
  Report Type: Spontaneous
  Country: US (occurrence: US)
  Receive Date: 20190226
  Receipt Date: 20190408
  Transmission Date: 20190711
  Serious: No
  Sender: FDA-Public Use
  Company Number: US-ELI_LILLY_AND_COMPANY-US201902009639

PATIENT
  Age: 67 Year
  Sex: Female

DRUGS (5)
  1. AMBRISENTAN [Suspect]
     Active Substance: AMBRISENTAN
     Indication: PULMONARY ARTERIAL HYPERTENSION
     Dosage: 10 MG, DAILY
     Route: 065
     Dates: start: 20190207
  2. REMODULIN [Suspect]
     Active Substance: TREPROSTINIL
     Dosage: 4 NG, UNKNOWN
     Route: 065
  3. TADALAFIL. [Suspect]
     Active Substance: TADALAFIL
     Indication: PULMONARY ARTERIAL HYPERTENSION
     Dosage: UNK UNK, UNKNOWN
     Route: 065
  4. REMODULIN [Suspect]
     Active Substance: TREPROSTINIL
     Dosage: 5.25 NG, UNKNOWN
     Route: 065
  5. REMODULIN [Suspect]
     Active Substance: TREPROSTINIL
     Indication: PULMONARY ARTERIAL HYPERTENSION
     Dosage: 1.25 NG, UNKNOWN
     Route: 065
     Dates: start: 20190205

REACTIONS (14)
  - Lethargy [Unknown]
  - Decreased appetite [Unknown]
  - Pain in jaw [Unknown]
  - Weight increased [Recovering/Resolving]
  - Insomnia [Unknown]
  - Pruritus [Unknown]
  - Constipation [Unknown]
  - Weight decreased [Unknown]
  - Rales [Unknown]
  - Fluid retention [Not Recovered/Not Resolved]
  - Oedema peripheral [Unknown]
  - Diarrhoea [Unknown]
  - Fatigue [Unknown]
  - Flushing [Unknown]

NARRATIVE: CASE EVENT DATE: 201902
